FAERS Safety Report 4971388-8 (Version None)
Quarter: 2006Q2

REPORT INFORMATION
  Report Type: 
  Country: None (occurrence: None)
  Receive Date: 20060406
  Receipt Date: 20060403
  Transmission Date: 20061013
  Serious: Yes (Other)
  Sender: FDA-Public Use
  Company Number: 200410614GDS

PATIENT
  Sex: Male

DRUGS (2)
  1. LEVITRA [Suspect]
     Indication: ERECTILE DYSFUNCTION
     Dosage: SEE IMAGE
     Route: 048
  2. ERGOTAMINE [Suspect]
     Indication: MIGRAINE

REACTIONS (3)
  - DRUG INTERACTION [None]
  - INCORRECT DOSE ADMINISTERED [None]
  - ISCHAEMIC STROKE [None]
